FAERS Safety Report 8529364-4 (Version None)
Quarter: 2012Q3

REPORT INFORMATION
  Report Type: 
  Country: None (occurrence: None)
  Receive Date: 20120723
  Receipt Date: 20120713
  Transmission Date: 20120928
  Serious: Yes (Hospitalization)
  Sender: FDA-Public Use
  Company Number: CA-JNJFOC-20120110142

PATIENT
  Sex: Female
  Weight: 37 kg

DRUGS (5)
  1. HYDROCORTISONE [Concomitant]
     Indication: PREMEDICATION
     Route: 042
     Dates: end: 20120522
  2. PREVACID [Concomitant]
     Route: 048
  3. ONDANSETRON [Concomitant]
     Route: 048
  4. ZANTAC [Concomitant]
     Route: 048
  5. REMICADE [Suspect]
     Indication: CROHN'S DISEASE
     Route: 042
     Dates: start: 20101001, end: 20120522

REACTIONS (7)
  - NASOPHARYNGITIS [None]
  - HERPES ZOSTER [None]
  - HOSPITALISATION [None]
  - RESPIRATORY TRACT CONGESTION [None]
  - HEADACHE [None]
  - VOMITING [None]
  - COUGH [None]
